FAERS Safety Report 4741732-5 (Version None)
Quarter: 2005Q3

REPORT INFORMATION
  Report Type: 
  Country: None (occurrence: None)
  Receive Date: 20050810
  Receipt Date: 20050708
  Transmission Date: 20060218
  Serious: Yes (Hospitalization, Other)
  Sender: FDA-Public Use
  Company Number: US-MERCK-0507USA01021

PATIENT
  Age: 50 Year
  Sex: Male
  Weight: 80 kg

DRUGS (2)
  1. STROMECTOL [Suspect]
     Indication: STRONGYLOIDIASIS
     Route: 048
     Dates: start: 20050630, end: 20050630
  2. COUMADIN [Concomitant]
     Indication: HYPERCOAGULATION
     Route: 048

REACTIONS (4)
  - PENILE SWELLING [None]
  - PERIORBITAL OEDEMA [None]
  - SCROTAL SWELLING [None]
  - URTICARIA [None]
